FAERS Safety Report 24556492 (Version 1)
Quarter: 2024Q4

REPORT INFORMATION
  Report Type: Spontaneous
  Country: US (occurrence: US)
  Receive Date: 20241028
  Receipt Date: 20241028
  Transmission Date: 20250115
  Serious: Yes (Life-Threatening, Hospitalization, Other)
  Sender: CIPLA
  Company Number: US-MLMSERVICE-20241010-PI223391-00049-1

PATIENT

DRUGS (11)
  1. PREGABALIN [Suspect]
     Active Substance: PREGABALIN
     Indication: Drug use disorder
     Dosage: 200 MG, EVERY 12 HOURS, THREE TIMES A DAY FOR SEVERAL WEEKS
     Route: 065
  2. BUPRENORPHINE AND NALOXONE [Suspect]
     Active Substance: BUPRENORPHINE HYDROCHLORIDE\NALOXONE HYDROCHLORIDE
     Indication: Drug use disorder
     Dosage: 16 MG/4 MG DAILY, QD
     Route: 065
  3. AMITRIPTYLINE [Suspect]
     Active Substance: AMITRIPTYLINE
     Indication: Drug use disorder
     Dosage: 75 MILLIGRAM, QD
     Route: 065
  4. FENTANYL [Suspect]
     Active Substance: FENTANYL
     Indication: Sedation
     Dosage: 2 MCG/KG, 1 TOTAL
     Route: 042
  5. FENTANYL [Suspect]
     Active Substance: FENTANYL
     Dosage: 0.7 MICROGRAM/KILOGRAM, HOURLY, DOSES ADJUSTED TO MAINTAIN RICHMOND AGITATION-SEDATION SCALE (RASS)
     Route: 065
  6. FENTANYL [Suspect]
     Active Substance: FENTANYL
     Dosage: 1 MICROGRAM/KILOGRAM, HOURLY, DOSES ADJUSTED TO MAINTAIN RICHMOND AGITATION-SEDATION SCALE (RASS) AT
     Route: 065
  7. PROPOFOL [Concomitant]
     Active Substance: PROPOFOL
     Indication: Sedation
     Dosage: 3 MICROGRAM/KILOGRAM, EVERY 1 HOUR
     Route: 065
  8. PROPOFOL [Concomitant]
     Active Substance: PROPOFOL
     Dosage: 1 MICROGRAM/KILOGRAM, EVERY 1 HOUR, DOSES ADJUSTED TO MAINTAIN RICHMOND AGITATION-SEDATION SCALE (RA
     Route: 065
  9. PROPOFOL [Concomitant]
     Active Substance: PROPOFOL
     Dosage: 3 MICROGRAM/KILOGRAM, EVERY 1 HOUR, DOSES ADJUSTED TO MAINTAIN RICHMOND AGITATION-SEDATION SCALE (RA
     Route: 065
  10. CEFTRIAXONE [Concomitant]
     Active Substance: CEFTRIAXONE
     Indication: Product used for unknown indication
     Dosage: 1 GRAM, UNK
     Route: 042
  11. AZITHROMYCIN [Concomitant]
     Active Substance: AZITHROMYCIN
     Indication: Product used for unknown indication
     Dosage: 500 GRAM, UNK
     Route: 042

REACTIONS (1)
  - Serotonin syndrome [Recovered/Resolved]
